FAERS Safety Report 5801114-1 (Version None)
Quarter: 2008Q3

REPORT INFORMATION
  Report Type: 
  Country: None (occurrence: None)
  Receive Date: 20080707
  Receipt Date: 20080626
  Transmission Date: 20090109
  Serious: Yes (Hospitalization, Other)
  Sender: FDA-Public Use
  Company Number: PL-WYE-H03441308

PATIENT
  Age: 32 Year
  Sex: Female

DRUGS (1)
  1. EFFEXOR XR [Suspect]
     Indication: MAJOR DEPRESSION
     Dosage: UNSPECIFIED DAILY DOSE
     Route: 048
     Dates: start: 20060101

REACTIONS (6)
  - ASPHYXIA [None]
  - HYPERHIDROSIS [None]
  - INTENTIONAL OVERDOSE [None]
  - LIBIDO DECREASED [None]
  - SUICIDAL IDEATION [None]
  - SUICIDE ATTEMPT [None]
